FAERS Safety Report 7037582-X (Version None)
Quarter: 2010Q4

REPORT INFORMATION
  Report Type: 
  Country: None (occurrence: None)
  Receive Date: 20101011
  Receipt Date: 20100928
  Transmission Date: 20110411
  Serious: Yes (Hospitalization, Other)
  Sender: FDA-Public Use
  Company Number: PHHY2010BR32648

PATIENT
  Age: 71 Year
  Sex: Female

DRUGS (5)
  1. FORASEQ [Suspect]
     Indication: ASTHMA
     Dosage: UNK
  2. AEROLIN ^3M^ [Concomitant]
     Indication: ASTHMA
     Dosage: UNK
  3. CORTISONE [Concomitant]
     Indication: ASTHMA
     Dosage: UNK
  4. BAMIFIX [Concomitant]
     Indication: ASTHMA
     Dosage: UNK
  5. BEROTEC [Concomitant]
     Indication: ASTHMA
     Dosage: UNK

REACTIONS (3)
  - ASTHMA [None]
  - CARDIAC ARREST [None]
  - DYSPNOEA [None]
